FAERS Safety Report 5233618-7 (Version None)
Quarter: 2007Q1

REPORT INFORMATION
  Report Type: 
  Country: None (occurrence: None)
  Receive Date: 20061208
  Receipt Date: 20060314
  Transmission Date: 20070707
  Serious: Yes (Other)
  Sender: FDA-Public Use
  Company Number: 2006UW04303

PATIENT
  Age: 71 Year
  Sex: Female
  Weight: 59.874 kg

DRUGS (4)
  1. CRESTOR [Suspect]
     Indication: BLOOD CHOLESTEROL INCREASED
     Dosage: 10 MG PO
     Route: 048
     Dates: start: 20060310
  2. COZAAR [Concomitant]
  3. PRILOSEC [Concomitant]
  4. DICYCLOMINE [Concomitant]

REACTIONS (2)
  - ALOPECIA [None]
  - SKIN BURNING SENSATION [None]
